FAERS Safety Report 18054735 (Version 1)
Quarter: 2020Q3

REPORT INFORMATION
  Report Type: Spontaneous
  Country: FR (occurrence: FR)
  Receive Date: 20200722
  Receipt Date: 20200722
  Transmission Date: 20201103
  Serious: Yes (Hospitalization, Other)
  Sender: FDA-Public Use
  Company Number: FR-PFIZER INC-2020274370

PATIENT
  Age: 36 Year
  Sex: Female

DRUGS (14)
  1. VENLAFAXINE HCL [Suspect]
     Active Substance: VENLAFAXINE HYDROCHLORIDE
     Dosage: 3 DF, SINGLE
     Route: 048
     Dates: start: 20140207, end: 20140207
  2. FLUOXETINE [Suspect]
     Active Substance: FLUOXETINE HYDROCHLORIDE
     Dosage: 6 DF, SINGLE
     Route: 048
     Dates: start: 20140207, end: 20140207
  3. SERESTA [Suspect]
     Active Substance: OXAZEPAM
     Dosage: 7.5 DF, SINGLE
     Route: 048
     Dates: start: 20140207, end: 20140207
  4. DEPAKOTE [Suspect]
     Active Substance: DIVALPROEX SODIUM
     Dosage: 9 DF, SINGLE
     Route: 048
     Dates: start: 20140207, end: 20140207
  5. TRIMEBUTINE [Suspect]
     Active Substance: TRIMEBUTINE
     Dosage: 6 DF, SINGLE
     Route: 048
     Dates: start: 20140207, end: 20140207
  6. TRANXENE [Suspect]
     Active Substance: CLORAZEPATE DIPOTASSIUM
     Dosage: 9 DF, SINGLE
     Route: 048
     Dates: start: 20140207, end: 20140207
  7. CYMBALTA [Suspect]
     Active Substance: DULOXETINE HYDROCHLORIDE
     Dosage: 28 DF, SINGLE
     Route: 048
     Dates: start: 20140207, end: 20140207
  8. DIPIPERON [Suspect]
     Active Substance: PIPAMPERONE
     Dosage: 4.5 DF, SINGLE
     Route: 048
     Dates: start: 20140207, end: 20140207
  9. ESOMEPRAZOLE MAGNESIUM. [Suspect]
     Active Substance: ESOMEPRAZOLE MAGNESIUM
     Dosage: 3 DF, SINGLE
     Route: 048
     Dates: start: 20140207, end: 20140207
  10. ABILIFY [Suspect]
     Active Substance: ARIPIPRAZOLE
     Dosage: 3 DF, SINGLE
     Route: 048
     Dates: start: 20140207, end: 20140207
  11. HAVLANE [Suspect]
     Active Substance: LOPRAZOLAM
     Dosage: 3 DF, SINGLE
     Route: 048
     Dates: start: 20140207, end: 20140207
  12. DOLIPRANE [Suspect]
     Active Substance: ACETAMINOPHEN
     Dosage: 8 DF, SINGLE
     Route: 048
     Dates: start: 20140207, end: 20140207
  13. LEVOTHYROX [Suspect]
     Active Substance: LEVOTHYROXINE
     Dosage: 3 DF, SINGLE
     Route: 048
     Dates: start: 20140207, end: 20140207
  14. ANTARENE CODEINE [Suspect]
     Active Substance: CODEINE PHOSPHATE\IBUPROFEN
     Dosage: 10 DF, SINGLE
     Route: 048
     Dates: start: 20140207, end: 20140207

REACTIONS (2)
  - Poisoning deliberate [Unknown]
  - Coma [Recovered/Resolved]

NARRATIVE: CASE EVENT DATE: 20140207
